FAERS Safety Report 16357659 (Version 1)
Quarter: 2019Q2

REPORT INFORMATION
  Report Type: Spontaneous
  Country: JP (occurrence: JP)
  Receive Date: 20190527
  Receipt Date: 20190527
  Transmission Date: 20190711
  Serious: Yes (Other)
  Sender: FDA-Public Use
  Company Number: JP-BEH-2019102653

PATIENT
  Age: 74 Year
  Sex: Female

DRUGS (5)
  1. VITAMIN K [Concomitant]
     Active Substance: PHYTONADIONE
     Dosage: 20 MG, DAILY
     Route: 042
  2. ASPIRIN. [Concomitant]
     Active Substance: ASPIRIN
     Route: 048
  3. WARFARIN POTASSIUM [Concomitant]
     Active Substance: WARFARIN POTASSIUM
     Route: 048
  4. KCENTRA [Suspect]
     Active Substance: COAGULATION FACTOR IX HUMAN\COAGULATION FACTOR VII HUMAN\COAGULATION FACTOR X HUMAN\PROTEIN C\PROTEIN S HUMAN\PROTHROMBIN
     Indication: PRODUCT USED FOR UNKNOWN INDICATION
     Dosage: 25 IU / KG
     Route: 042
  5. CORTRIL [Concomitant]
     Active Substance: HYDROCORTISONE
     Route: 048

REACTIONS (1)
  - Cerebral haematoma [Unknown]
